FAERS Safety Report 7645576-6 (Version None)
Quarter: 2011Q3

REPORT INFORMATION
  Report Type: 
  Country: None (occurrence: None)
  Receive Date: 20110729
  Receipt Date: 20110727
  Transmission Date: 20111222
  Serious: Yes (Other)
  Sender: FDA-Public Use
  Company Number: US-PFIZER INC-2011087805

PATIENT
  Sex: Male

DRUGS (8)
  1. BUPROPION [Concomitant]
     Indication: DEPRESSION
     Dosage: UNK
     Dates: start: 20040101, end: 20110301
  2. EFFEXOR [Concomitant]
     Indication: PANIC ATTACK
  3. CHANTIX [Suspect]
     Indication: SMOKING CESSATION THERAPY
     Dosage: STARTING PACK AND 1MG
     Dates: start: 20080729, end: 20080818
  4. TRAZODONE [Concomitant]
     Indication: INSOMNIA
     Dosage: UNK
     Dates: start: 19870101
  5. EFFEXOR [Concomitant]
     Indication: ANXIETY
  6. EFFEXOR [Concomitant]
     Indication: DEPRESSION
     Dosage: UNK
  7. LASIX [Concomitant]
     Indication: OEDEMA
     Dosage: UNK
  8. CHLORPHENIRAMINE MALEATE [Concomitant]
     Indication: MASTOCYTOSIS
     Dosage: UNK

REACTIONS (6)
  - ANXIETY [None]
  - PANIC ATTACK [None]
  - SUICIDAL IDEATION [None]
  - AGGRESSION [None]
  - DEPRESSION [None]
  - INSOMNIA [None]
